FAERS Safety Report 5703675-X (Version None)
Quarter: 2008Q2

REPORT INFORMATION
  Report Type: 
  Country: None (occurrence: None)
  Receive Date: 20080413
  Receipt Date: 20080404
  Transmission Date: 20081010
  Serious: Yes (Other)
  Sender: FDA-Public Use
  Company Number: PHHY2008JP03630

PATIENT
  Age: 64 Year
  Sex: Female
  Weight: 39 kg

DRUGS (1)
  1. ZOMETA [Suspect]
     Indication: METASTASES TO BONE
     Dosage: 4 MG, QD
     Route: 042
     Dates: start: 20060801, end: 20070901

REACTIONS (6)
  - GINGIVITIS [None]
  - IMPAIRED HEALING [None]
  - INCISIONAL DRAINAGE [None]
  - OSTEOMYELITIS [None]
  - OSTEORADIONECROSIS [None]
  - TOOTH EXTRACTION [None]
